FAERS Safety Report 26066021 (Version 1)
Quarter: 2025Q4

REPORT INFORMATION
  Report Type: Spontaneous
  Country: PA (occurrence: PA)
  Receive Date: 20251119
  Receipt Date: 20251119
  Transmission Date: 20260119
  Serious: Yes (Hospitalization)
  Sender: GLAXOSMITHKLINE
  Company Number: PA-GSK-PA2025148391

PATIENT
  Age: 33 Year
  Sex: Female

DRUGS (1)
  1. FLUTICASONE FUROATE [Suspect]
     Active Substance: FLUTICASONE FUROATE
     Indication: Product used for unknown indication
     Dosage: 1 PUFF(S), BID, A PUFF AT THE MORNING AND ONE AT NIGHT

REACTIONS (1)
  - Inflammation [Recovered/Resolved with Sequelae]
